FAERS Safety Report 5032145-X (Version None)
Quarter: 2006Q2

REPORT INFORMATION
  Report Type: 
  Country: None (occurrence: None)
  Receive Date: 20060619
  Receipt Date: 20060608
  Transmission Date: 20061013
  Serious: Yes (Other)
  Sender: FDA-Public Use
  Company Number: 2006060034

PATIENT
  Age: 30 Year
  Sex: Male

DRUGS (2)
  1. FELBATOL [Suspect]
     Indication: CONVULSION
     Dosage: 2 TABLETS AM,  2 LUNCH,  2 PM (400 MG), ORAL
     Route: 048
  2. FELBATOL [Suspect]

REACTIONS (4)
  - CONVULSION [None]
  - FALL [None]
  - LACERATION [None]
  - SLEEP DISORDER [None]
